FAERS Safety Report 4949785-6 (Version None)
Quarter: 2006Q1

REPORT INFORMATION
  Report Type: 
  Country: None (occurrence: None)
  Receive Date: 20060321
  Receipt Date: 20051208
  Transmission Date: 20060701
  Serious: Yes (Hospitalization, Other)
  Sender: FDA-Public Use
  Company Number: US-MERCK-0512USA01755

PATIENT
  Sex: Female
  Weight: 64 kg

DRUGS (4)
  1. VIOXX [Suspect]
     Indication: PAIN IN EXTREMITY
     Route: 048
     Dates: start: 20011001, end: 20041201
  2. ZANAFLEX [Concomitant]
     Route: 065
  3. CELEBREX [Concomitant]
     Route: 065
  4. NEURONTIN [Concomitant]
     Route: 065

REACTIONS (4)
  - ANXIETY [None]
  - CHEST PAIN [None]
  - MYOCARDIAL INFARCTION [None]
  - OVERDOSE [None]
